FAERS Safety Report 10396199 (Version 1)
Quarter: 2014Q1

REPORT INFORMATION
  Report Type: Spontaneous
  Country: US (occurrence: None)
  Receive Date: 20130815
  Receipt Date: 20130815
  Transmission Date: 20141002
  Serious: Yes (Hospitalization, Other)
  Sender: FDA-Public Use
  Company Number: ADR-2013-00310

PATIENT
  Age: 55 Year
  Sex: Female

DRUGS (1)
  1. LIORESAL  INTRATHECAL (BACLOFEN INJECTION) [Suspect]
     Indication: MUSCLE SPASTICITY

REACTIONS (4)
  - Drug withdrawal syndrome [None]
  - Muscle spasticity [None]
  - Convulsion [None]
  - Mental status changes [None]
